FAERS Safety Report 9070966 (Version 1)
Quarter: 2013Q1

REPORT INFORMATION
  Report Type: Report from Study
  Country: JP (occurrence: JP)
  Receive Date: 20130129
  Receipt Date: 20130129
  Transmission Date: 20140127
  Serious: Yes (Other)
  Sender: FDA-Public Use
  Company Number: JP-GLAXOSMITHKLINE-B0860301A

PATIENT
  Age: 14 None
  Sex: Male

DRUGS (34)
  1. LAMICTAL [Suspect]
     Indication: EPILEPSY
     Dosage: 5MG TWICE PER DAY
     Route: 048
     Dates: start: 20091124, end: 20091207
  2. LAMICTAL [Suspect]
     Indication: EPILEPSY
     Dosage: 10MG TWICE PER DAY
     Route: 048
     Dates: start: 20091208, end: 20091221
  3. LAMICTAL [Suspect]
     Indication: EPILEPSY
     Dosage: 20MG TWICE PER DAY
     Route: 048
     Dates: start: 20091222, end: 20091228
  4. LAMICTAL [Suspect]
     Indication: EPILEPSY
     Dosage: 30MG TWICE PER DAY
     Route: 048
     Dates: start: 20091228, end: 20100222
  5. LAMICTAL [Suspect]
     Indication: EPILEPSY
     Dosage: 20MG TWICE PER DAY
     Route: 048
     Dates: start: 20100223, end: 20100309
  6. LEXIN [Suspect]
     Indication: EPILEPSY
     Route: 048
     Dates: start: 20091026, end: 20100127
  7. LEXIN [Suspect]
     Indication: EPILEPSY
     Route: 048
     Dates: start: 20100128, end: 20100210
  8. SODIUM VALPROATE [Concomitant]
     Indication: EPILEPSY
     Route: 048
     Dates: end: 20030610
  9. SODIUM VALPROATE [Concomitant]
     Indication: EPILEPSY
     Route: 048
     Dates: start: 20030611, end: 20030722
  10. SODIUM VALPROATE [Concomitant]
     Indication: EPILEPSY
     Route: 048
     Dates: start: 20030723, end: 20040113
  11. SODIUM VALPROATE [Concomitant]
     Indication: EPILEPSY
     Route: 048
     Dates: start: 20040114, end: 20040408
  12. SODIUM VALPROATE [Concomitant]
     Indication: EPILEPSY
     Route: 048
     Dates: start: 20040409, end: 20040511
  13. SODIUM VALPROATE [Concomitant]
     Indication: EPILEPSY
     Route: 048
     Dates: start: 20040512, end: 20070528
  14. SODIUM VALPROATE [Concomitant]
     Indication: EPILEPSY
     Route: 048
     Dates: start: 20070529, end: 20080313
  15. SODIUM VALPROATE [Concomitant]
     Indication: EPILEPSY
     Route: 048
     Dates: start: 20080314, end: 20080901
  16. TOPIRAMATE [Concomitant]
     Indication: EPILEPSY
     Route: 048
     Dates: end: 20081120
  17. TOPIRAMATE [Concomitant]
     Indication: EPILEPSY
     Route: 048
     Dates: start: 20081121, end: 20090119
  18. TOPIRAMATE [Concomitant]
     Indication: EPILEPSY
     Route: 048
     Dates: start: 20090120, end: 20090217
  19. TOPIRAMATE [Concomitant]
     Indication: EPILEPSY
     Route: 048
     Dates: start: 20090218, end: 20091124
  20. TOPIRAMATE [Concomitant]
     Indication: EPILEPSY
     Route: 048
     Dates: start: 20091125, end: 20091221
  21. TOPIRAMATE [Concomitant]
     Indication: EPILEPSY
     Route: 048
     Dates: start: 20091221, end: 20100108
  22. CLOBAZAM [Concomitant]
     Indication: EPILEPSY
     Route: 048
     Dates: end: 20090519
  23. CLOBAZAM [Concomitant]
     Indication: EPILEPSY
     Route: 048
     Dates: start: 20090520, end: 20090601
  24. CLOBAZAM [Concomitant]
     Indication: EPILEPSY
     Route: 048
     Dates: start: 20090602, end: 20090618
  25. CLOBAZAM [Concomitant]
     Indication: EPILEPSY
     Route: 048
     Dates: start: 20090619, end: 20090630
  26. CLOBAZAM [Concomitant]
     Indication: EPILEPSY
     Route: 048
     Dates: start: 20090701, end: 20090714
  27. CLOBAZAM [Concomitant]
     Indication: EPILEPSY
     Route: 048
     Dates: start: 20090715, end: 20090728
  28. CLOBAZAM [Concomitant]
     Indication: EPILEPSY
     Route: 048
     Dates: start: 20090729, end: 20090811
  29. ZONISAMIDE [Concomitant]
     Indication: EPILEPSY
     Route: 048
     Dates: start: 20100223
  30. ZONISAMIDE [Concomitant]
     Indication: EPILEPSY
     Route: 048
     Dates: start: 20100310
  31. ZONISAMIDE [Concomitant]
     Indication: EPILEPSY
     Route: 048
     Dates: start: 20100324
  32. DEPAKENE-R [Concomitant]
     Indication: EPILEPSY
     Route: 048
     Dates: start: 20091026, end: 20091124
  33. DEPAKENE-R [Concomitant]
     Indication: EPILEPSY
     Route: 048
     Dates: start: 20091124, end: 20100112
  34. DEPAKENE-R [Concomitant]
     Indication: EPILEPSY
     Route: 048
     Dates: start: 20100113

REACTIONS (1)
  - Loss of consciousness [Recovered/Resolved]
